FAERS Safety Report 4736978-6 (Version None)
Quarter: 2005Q3

REPORT INFORMATION
  Report Type: 
  Country: None (occurrence: None)
  Receive Date: 20050804
  Receipt Date: 20050721
  Transmission Date: 20060218
  Serious: Yes (Hospitalization)
  Sender: FDA-Public Use
  Company Number: S05-DEN-02626-02

PATIENT
  Age: 1 Day
  Sex: Male
  Weight: 3.6 kg

DRUGS (1)
  1. CITALOPRAM HYDROBROMIDE [Suspect]
     Indication: PANIC DISORDER
     Dosage: 60 MG QD TRANSPLACENTAL
     Route: 064
     Dates: end: 20050712

REACTIONS (11)
  - APGAR SCORE LOW [None]
  - CYANOSIS NEONATAL [None]
  - DRUG EXPOSURE DURING PREGNANCY [None]
  - DRUG WITHDRAWAL SYNDROME NEONATAL [None]
  - HYPERTHERMIA [None]
  - HYPOTONIA NEONATAL [None]
  - IRRITABILITY [None]
  - NEONATAL DISORDER [None]
  - NEONATAL RESPIRATORY DISTRESS SYNDROME [None]
  - RESPIRATORY DISORDER NEONATAL [None]
  - TREMOR NEONATAL [None]
